FAERS Safety Report 11044115 (Version 1)
Quarter: 2015Q2

REPORT INFORMATION
  Report Type: Spontaneous
  Country: US (occurrence: None)
  Receive Date: 20150415
  Receipt Date: 20150415
  Transmission Date: 20150821
  Serious: Yes (Other)
  Sender: FDA-Public Use
  Company Number: FK201501717

PATIENT
  Age: 44 Year
  Sex: Male

DRUGS (15)
  1. ATAZANAVIR (ATAZANAVIR) [Suspect]
     Active Substance: ATAZANAVIR
     Indication: HIV INFECTION
  2. DOXORUBICIN [Concomitant]
     Active Substance: DOXORUBICIN
  3. FILGRASTIM [Concomitant]
     Active Substance: FILGRASTIM
  4. TENOFOVIR (TENOFOVIR) UNKNOWN [Suspect]
     Active Substance: TENOFOVIR
     Indication: HIV INFECTION
  5. SULFAMETHOXAZOLE AND TRIMETHOPRIM [Concomitant]
     Active Substance: SULFAMETHOXAZOLE\TRIMETHOPRIM
  6. CYCLOPHOSPHAMIDE. [Concomitant]
     Active Substance: CYCLOPHOSPHAMIDE
  7. VINBLASTINE (MANUFACTURER UNKNOWN) (VINBLASTINE SULFATE) (VINBLASTINE SULFATE) [Suspect]
     Active Substance: VINBLASTINE SULFATE
     Indication: HODGKIN^S DISEASE
  8. BLEOMYCIN [Concomitant]
     Active Substance: BLEOMYCIN SULFATE
  9. PREDNISONE. [Concomitant]
     Active Substance: PREDNISONE
  10. EFAVIRENZ [Concomitant]
     Active Substance: EFAVIRENZ
  11. VINCRISTINE [Concomitant]
     Active Substance: VINCRISTINE
  12. VINBLASTINE (MANUFACTURER UNKNOWN) (VINBLASTINE SULFATE) (VINBLASTINE SULFATE) [Suspect]
     Active Substance: VINBLASTINE SULFATE
     Indication: HIV INFECTION
  13. RITONAVIR (RITONAVIR) [Suspect]
     Active Substance: RITONAVIR
     Indication: HIV INFECTION
  14. DACARBAZINE. [Concomitant]
     Active Substance: DACARBAZINE
  15. LAMIVUDINE. [Concomitant]
     Active Substance: LAMIVUDINE

REACTIONS (3)
  - Febrile neutropenia [None]
  - Drug interaction [None]
  - Neuropathy peripheral [None]
